FAERS Safety Report 8887552 (Version 1)
Quarter: 2012Q4

REPORT INFORMATION
  Report Type: Spontaneous
  Country: US (occurrence: None)
  Receive Date: 20121101
  Receipt Date: 20121101
  Transmission Date: 20130627
  Serious: Yes (Other)
  Sender: FDA-Public Use
  Company Number: None

PATIENT
  Age: 57 Year
  Sex: Male

DRUGS (3)
  1. RIBAVIRIN [Suspect]
     Indication: HEPATITIS C
     Route: 048
     Dates: start: 20120913, end: 20121024
  2. PEGASYS 180MCG/0.5ML GENENTECH [Suspect]
     Indication: HEPATITIS C
     Dates: start: 20120913, end: 20121024
  3. VICTRELIS [Concomitant]

REACTIONS (13)
  - Headache [None]
  - Pyrexia [None]
  - Chills [None]
  - Rash [None]
  - Diarrhoea [None]
  - Burning sensation [None]
  - Anorectal discomfort [None]
  - Alopecia [None]
  - Depression [None]
  - Nausea [None]
  - Decreased appetite [None]
  - Irritability [None]
  - Insomnia [None]
